FAERS Safety Report 10022633 (Version 1)
Quarter: 2014Q1

REPORT INFORMATION
  Report Type: Spontaneous
  Country: US (occurrence: US)
  Receive Date: 20140319
  Receipt Date: 20140319
  Transmission Date: 20141002
  Serious: No
  Sender: FDA-Public Use
  Company Number: US-GILEAD-2014-0096827

PATIENT
  Sex: Male

DRUGS (2)
  1. TRUVADA [Suspect]
     Indication: PROPHYLAXIS AGAINST HIV INFECTION
     Dosage: UNK
     Route: 065
     Dates: start: 20140129, end: 20140226
  2. AMPICILLIN\CLOXACILLIN [Suspect]
     Indication: PROPHYLAXIS AGAINST HIV INFECTION
     Dosage: 500 MG, TID
     Route: 048
     Dates: start: 20140124, end: 20140129

REACTIONS (9)
  - Pollakiuria [Recovered/Resolved]
  - Scrotal disorder [Recovered/Resolved]
  - Chromaturia [Not Recovered/Not Resolved]
  - Dry mouth [Not Recovered/Not Resolved]
  - Tonsillar hypertrophy [Recovered/Resolved]
  - Local swelling [Recovered/Resolved]
  - Oropharyngeal pain [Recovered/Resolved]
  - Dizziness [Recovered/Resolved]
  - Insomnia [Recovered/Resolved]
